FAERS Safety Report 8933056 (Version 1)
Quarter: 2012Q4

REPORT INFORMATION
  Report Type: 
  Country: US (occurrence: US)
  Receive Date: 20121129
  Receipt Date: 20121129
  Transmission Date: 20130627
  Serious: No
  Sender: FDA-Public Use
  Company Number: US-009507513-1211USA011888

PATIENT
  Age: 40 Year
  Sex: Male

DRUGS (1)
  1. JANUMET XR [Suspect]
     Indication: TYPE 2 DIABETES MELLITUS
     Dosage: 50 mg sitagliptin/1000 mg metformin Hcl, qd
     Route: 048

REACTIONS (1)
  - Diarrhoea [Recovered/Resolved]
